FAERS Safety Report 4393616-2 (Version None)
Quarter: 2004Q3

REPORT INFORMATION
  Report Type: 
  Country: None (occurrence: None)
  Receive Date: 20040708
  Receipt Date: 20040708
  Transmission Date: 20050211
  Serious: Yes (Hospitalization, Other)
  Sender: FDA-Public Use
  Company Number: None

PATIENT
  Age: 53 Year
  Sex: Female
  Weight: 71.2147 kg

DRUGS (5)
  1. EFFEXOR XR [Suspect]
     Indication: ANXIETY
     Dosage: 75 MGS DAILY ORAL
     Route: 048
     Dates: start: 20030901, end: 20040707
  2. EFFEXOR XR [Suspect]
     Indication: DEPRESSION
     Dosage: 75 MGS DAILY ORAL
     Route: 048
     Dates: start: 20030901, end: 20040707
  3. KLONOPIN [Concomitant]
  4. ATIVAN [Concomitant]
  5. TRAZODONE HCL [Concomitant]

REACTIONS (2)
  - SUICIDAL IDEATION [None]
  - SUICIDE ATTEMPT [None]
